FAERS Safety Report 4535029-6 (Version None)
Quarter: 2004Q4

REPORT INFORMATION
  Report Type: 
  Country: None (occurrence: None)
  Receive Date: 20041222
  Receipt Date: 20041020
  Transmission Date: 20050328
  Serious: Yes (Other)
  Sender: FDA-Public Use
  Company Number: US-ROCHE-384085

PATIENT
  Age: 49 Year
  Sex: Female
  Weight: 98.9 kg

DRUGS (15)
  1. PEGASYS [Suspect]
     Route: 058
     Dates: start: 20040930, end: 20041020
  2. RIBAVIRIN [Suspect]
     Route: 048
     Dates: start: 20040930, end: 20041020
  3. PROZAC [Concomitant]
     Indication: MENOPAUSAL SYMPTOMS
     Route: 048
     Dates: end: 20041015
  4. FOSAMAX [Concomitant]
     Indication: OSTEOPOROSIS
     Route: 048
  5. FLONASE [Concomitant]
     Route: 050
  6. TRIAMTERENE AND HYDROCHLOROTHIAZIDE [Concomitant]
     Indication: DIZZINESS
     Route: 048
  7. VITAMIN D [Concomitant]
     Indication: OSTEOPOROSIS
  8. DIAZEPAM [Concomitant]
     Indication: DIZZINESS
     Route: 048
  9. CIPROFLOXACIN [Concomitant]
  10. PROPOXYPHENE [Concomitant]
  11. RABEPRAZOLE SODIUM [Concomitant]
  12. ALENDRONATE SODIUM [Concomitant]
  13. LEVOTHYROXINE SODIUM [Concomitant]
  14. FLUNISOLIDE [Concomitant]
  15. PSEUDOEPHEDRINE HCL/TRIPROLIDINE HCL [Concomitant]

REACTIONS (10)
  - CHILLS [None]
  - DIZZINESS [None]
  - HEADACHE [None]
  - MYALGIA [None]
  - NAUSEA [None]
  - PARANASAL SINUS HYPERSECRETION [None]
  - SINUS DISORDER [None]
  - SINUS PAIN [None]
  - TINNITUS [None]
  - VISION BLURRED [None]
